FAERS Safety Report 5545927-2 (Version None)
Quarter: 2007Q4

REPORT INFORMATION
  Report Type: 
  Country: None (occurrence: None)
  Receive Date: 20071211
  Receipt Date: 20071019
  Transmission Date: 20080405
  Serious: No
  Sender: FDA-Public Use
  Company Number: US-ASTRAZENECA-2007UW24506

PATIENT
  Age: 76 Year
  Sex: Female
  Weight: 53.5 kg

DRUGS (8)
  1. SYMBICORT [Suspect]
     Indication: DYSPNOEA
     Dosage: 160/4.5 UG; 1 PUFF TWICE DAILY
     Route: 055
  2. FORTEO [Concomitant]
     Route: 048
  3. NEXIUM [Concomitant]
     Route: 048
  4. SPIRIVA [Concomitant]
     Route: 048
  5. ALTACE [Concomitant]
     Route: 048
  6. SYNTHROID [Concomitant]
     Route: 048
  7. CALTRATE [Concomitant]
     Route: 048
  8. RESTASIS [Concomitant]
     Route: 031

REACTIONS (2)
  - CARDIAC FLUTTER [None]
  - NERVOUSNESS [None]
